FAERS Safety Report 17737085 (Version 2)
Quarter: 2020Q3

REPORT INFORMATION
  Report Type: Spontaneous
  Country: US (occurrence: US)
  Receive Date: 20200502
  Receipt Date: 20200723
  Transmission Date: 20201102
  Serious: Yes (Other)
  Sender: FDA-Public Use
  Company Number: US-BION-008676

PATIENT
  Age: 83 Year
  Sex: Female

DRUGS (1)
  1. NIMODIPINE. [Suspect]
     Active Substance: NIMODIPINE
     Indication: SUBARACHNOID HAEMORRHAGE
     Dosage: NIMODIPINE (NIMOTOP) 60 MG
     Route: 048

REACTIONS (1)
  - Nodal arrhythmia [Recovered/Resolved]
